FAERS Safety Report 6249985-1 (Version None)
Quarter: 2009Q2

REPORT INFORMATION
  Report Type: 
  Country: None (occurrence: None)
  Receive Date: 20090625
  Receipt Date: 20090617
  Transmission Date: 20091009
  Serious: Yes (Hospitalization)
  Sender: FDA-Public Use
  Company Number: DSA_33765_2009

PATIENT
  Sex: Female

DRUGS (7)
  1. XENAZINE [Suspect]
     Indication: HUNTINGTON'S CHOREA
     Dosage: 12.5 MG, BID
     Dates: end: 20081201
  2. RISPERDAL [Concomitant]
  3. AMANTADINE HCL [Concomitant]
  4. DITROPAN [Concomitant]
  5. PREVACID [Concomitant]
  6. NAMENDA [Concomitant]
  7. HALDOL [Concomitant]

REACTIONS (10)
  - ABNORMAL BEHAVIOUR [None]
  - ANGER [None]
  - DEMENTIA [None]
  - DEPRESSION [None]
  - DISEASE PROGRESSION [None]
  - GENERAL PHYSICAL HEALTH DETERIORATION [None]
  - HUNTINGTON'S CHOREA [None]
  - MALAISE [None]
  - PNEUMONIA [None]
  - SUICIDE ATTEMPT [None]
